FAERS Safety Report 8518407-X (Version None)
Quarter: 2012Q2

REPORT INFORMATION
  Report Type: 
  Country: None (occurrence: None)
  Receive Date: 20120406
  Receipt Date: 20090426
  Transmission Date: 20120825
  Serious: Yes (Other)
  Sender: FDA-Public Use
  Company Number: PHEH2009US04139

PATIENT
  Age: 57 Year
  Sex: Female

DRUGS (3)
  1. EVISTA [Concomitant]
  2. MECLIZINE [Concomitant]
  3. TASIGNA [Suspect]
     Indication: CHRONIC MYELOID LEUKAEMIA
     Dosage: 400 MG, QD

REACTIONS (6)
  - BONE PAIN [None]
  - MUSCLE SPASMS [None]
  - RASH [None]
  - ARTHRALGIA [None]
  - FLUID RETENTION [None]
  - FATIGUE [None]
